FAERS Safety Report 7785641-6 (Version None)
Quarter: 2011Q3

REPORT INFORMATION
  Report Type: 
  Country: None (occurrence: None)
  Receive Date: 20110929
  Receipt Date: 20110929
  Transmission Date: 20111222
  Serious: No
  Sender: FDA-Public Use
  Company Number: None

PATIENT
  Age: 57 Year
  Sex: Female
  Weight: 104.32 kg

DRUGS (1)
  1. ICYHOT POWER GEL [Suspect]
     Indication: MYALGIA
     Dosage: 1 APPLICATION
     Route: 061
     Dates: start: 20110920, end: 20110924

REACTIONS (5)
  - APPLICATION SITE EXFOLIATION [None]
  - CHEMICAL INJURY [None]
  - APPLICATION SITE PAIN [None]
  - APPLICATION SITE ERYTHEMA [None]
  - APPLICATION SITE BURN [None]
